FAERS Safety Report 5788331-4 (Version None)
Quarter: 2008Q2

REPORT INFORMATION
  Report Type: 
  Country: None (occurrence: None)
  Receive Date: 20080625
  Receipt Date: 20080530
  Transmission Date: 20081010
  Serious: Yes (Other)
  Sender: FDA-Public Use
  Company Number: FR-GENENTECH-262063

PATIENT
  Age: 34 Year
  Sex: Female

DRUGS (3)
  1. MABTHERA [Suspect]
     Indication: RHEUMATOID ARTHRITIS
     Dosage: 1 G, Q2W
     Dates: start: 20051201
  2. METHOTREXATE [Concomitant]
     Indication: RHEUMATOID ARTHRITIS
     Dates: start: 20051201
  3. STEROIDS NOS [Concomitant]
     Indication: RHEUMATOID ARTHRITIS
     Dates: start: 20051201

REACTIONS (1)
  - NEUTROPENIA [None]
